FAERS Safety Report 5511703-X (Version None)
Quarter: 2007Q4

REPORT INFORMATION
  Report Type: 
  Country: None (occurrence: None)
  Receive Date: 20071109
  Receipt Date: 20071026
  Transmission Date: 20080405
  Serious: Yes (Other)
  Sender: FDA-Public Use
  Company Number: CA-GENENTECH-250415

PATIENT
  Sex: Female
  Weight: 66 kg

DRUGS (1)
  1. OMALIZUMAB [Suspect]
     Indication: ASTHMA
     Dosage: 300 UNK, 1/MONTH
     Route: 058
     Dates: start: 20070301

REACTIONS (3)
  - ASTHMA [None]
  - BLOOD GLUCOSE ABNORMAL [None]
  - PULMONARY CONGESTION [None]
